FAERS Safety Report 7732394-3 (Version None)
Quarter: 2011Q3

REPORT INFORMATION
  Report Type: 
  Country: None (occurrence: None)
  Receive Date: 20110906
  Receipt Date: 20110831
  Transmission Date: 20111222
  Serious: Yes (Other)
  Sender: FDA-Public Use
  Company Number: US-PFIZER INC-2011188166

PATIENT
  Age: 60 Year
  Sex: Male

DRUGS (4)
  1. CELEBREX [Suspect]
     Indication: OSTEOARTHRITIS
     Dosage: 200 MG DAILY
  2. ZOCOR [Concomitant]
  3. ACETYLSALICYLIC ACID [Concomitant]
  4. NEXIUM [Concomitant]

REACTIONS (1)
  - COLITIS ULCERATIVE [None]
